FAERS Safety Report 11283184 (Version 1)
Quarter: 2015Q3

REPORT INFORMATION
  Report Type: Spontaneous
  Country: US (occurrence: None)
  Receive Date: 20150717
  Receipt Date: 20150717
  Transmission Date: 20151125
  Serious: Yes (Other)
  Sender: FDA-Public Use
  Company Number: None

PATIENT
  Sex: Female

DRUGS (1)
  1. METOPROLOL SUCC ER [Suspect]
     Active Substance: METOPROLOL SUCCINATE
     Indication: CARDIAC DISORDER
     Dosage: 1 TABLET, ONCE DAILY, TAKEN BY MOUTH
     Route: 048
     Dates: start: 20150521, end: 20150708

REACTIONS (3)
  - Rash [None]
  - Dermatitis herpetiformis [None]
  - Product formulation issue [None]

NARRATIVE: CASE EVENT DATE: 20150522
